FAERS Safety Report 19389845 (Version 1)
Quarter: 2021Q2

REPORT INFORMATION
  Report Type: Spontaneous
  Country: SA (occurrence: SA)
  Receive Date: 20210608
  Receipt Date: 20210608
  Transmission Date: 20210717
  Serious: Yes (Other)
  Sender: FDA-Public Use
  Company Number: NVSC2021SA123888

PATIENT
  Age: 14 Month
  Sex: Male

DRUGS (5)
  1. METHOTREXATE. [Suspect]
     Active Substance: METHOTREXATE
     Dosage: WEEKLY  (60 PERCENT OF TOTAL DOSE AND THEN GRADUAL INCREASE UPTO 100 PERCENT)
     Route: 048
  2. MERCAPTOPURINE. [Concomitant]
     Active Substance: MERCAPTOPURINE
     Indication: T-CELL TYPE ACUTE LEUKAEMIA
     Dosage: DAILY
     Route: 048
  3. METHOTREXATE. [Suspect]
     Active Substance: METHOTREXATE
     Indication: T-CELL TYPE ACUTE LEUKAEMIA
     Dosage: EVERY 3 MONTHS (TOTAL OF 23 INTRATHECAL DOSES)
     Route: 037
  4. VINCRISTINE [Suspect]
     Active Substance: VINCRISTINE
     Indication: T-CELL TYPE ACUTE LEUKAEMIA
     Dosage: MONTHLY
     Route: 065
  5. LEVOTHYROXINE. [Concomitant]
     Active Substance: LEVOTHYROXINE
     Indication: HYPOTHYROIDISM
     Dosage: UNK
     Route: 065

REACTIONS (3)
  - Depressed level of consciousness [Recovering/Resolving]
  - Decreased activity [Unknown]
  - Hypotonia [Unknown]
